FAERS Safety Report 24880376 (Version 12)
Quarter: 2025Q4

REPORT INFORMATION
  Report Type: Report from Study
  Country: EU (occurrence: EU)
  Receive Date: 20250123
  Receipt Date: 20251114
  Transmission Date: 20260117
  Serious: Yes (Other)
  Sender: ABBVIE
  Company Number: EU-ABBVIE-5972650

PATIENT
  Age: 58 Year
  Sex: Male

DRUGS (25)
  1. FOSCARBIDOPA\FOSLEVODOPA [Suspect]
     Active Substance: FOSCARBIDOPA\FOSLEVODOPA
     Indication: Parkinson^s disease
     Dosage: PRESCRIBED-1 VIAL, HIGH RATE 0.37ML/HR, 0.34ML/HR, 0.27ML/HR
     Route: 058
     Dates: start: 20241009, end: 20241009
  2. FOSCARBIDOPA\FOSLEVODOPA [Suspect]
     Active Substance: FOSCARBIDOPA\FOSLEVODOPA
     Dosage: RATE CAN BE INCREASED BY 0.01ML. ?LOW RATE REMAINS AT 0.36ML AS PATIENT SLEEPING WELL AND WAKING ...
     Route: 058
     Dates: start: 20250128
  3. FOSCARBIDOPA\FOSLEVODOPA [Suspect]
     Active Substance: FOSCARBIDOPA\FOSLEVODOPA
     Dosage: DOSE INCREASE OF 0.01ML. ?BASE AND HIGH RATE INCREASED FROM 0.46ML TO 0.47ML?LAST ADMIN DATE: FEB...
     Route: 058
     Dates: start: 20250206
  4. FOSCARBIDOPA\FOSLEVODOPA [Suspect]
     Active Substance: FOSCARBIDOPA\FOSLEVODOPA
     Dosage: BASE AND HIGH RATE INCREASED BY 0.01ML FROM 0.47ML TO 0.48ML ?LOW RATE REMAINS UNCHANGED?LOCK OUT...
     Route: 058
     Dates: start: 20250213
  5. FOSCARBIDOPA\FOSLEVODOPA [Suspect]
     Active Substance: FOSCARBIDOPA\FOSLEVODOPA
     Dosage: BASE 0.38ML; HIGH RATE 0.40ML
     Route: 058
     Dates: start: 20241010, end: 20241010
  6. FOSCARBIDOPA\FOSLEVODOPA [Suspect]
     Active Substance: FOSCARBIDOPA\FOSLEVODOPA
     Dosage: DECREASE ALL RATES BY 0.01ML?LAST ADMIN DATE: MAR 2025
     Route: 058
     Dates: start: 202503
  7. FOSCARBIDOPA\FOSLEVODOPA [Suspect]
     Active Substance: FOSCARBIDOPA\FOSLEVODOPA
     Dosage: REDUCING LOW RATE FROM 0.35 ML TO 0.33ML BASE/HIGH RATE WHICH REMAINS 0.47ML.
     Route: 058
     Dates: start: 202503, end: 20250417
  8. FOSCARBIDOPA\FOSLEVODOPA [Suspect]
     Active Substance: FOSCARBIDOPA\FOSLEVODOPA
     Dosage: PUMP; 0.4 TO 0.44 (I.E. A 10% INCREASE) AS A NEW BASE RATE AND PROVIDE A NEW HIGH RATE OF 0.48. H...
     Route: 058
  9. FOSCARBIDOPA\FOSLEVODOPA [Suspect]
     Active Substance: FOSCARBIDOPA\FOSLEVODOPA
     Dosage: FIRST ADMIN DATE AND LAST ADMIN DATE: OCT 2024,?INCREASED BASE RATE FROM 0.37ML TO 0.38ML.
     Route: 058
  10. FOSCARBIDOPA\FOSLEVODOPA [Suspect]
     Active Substance: FOSCARBIDOPA\FOSLEVODOPA
     Dosage: INCREASE BASE RATE TO 0.39ML, LEFT HIGH RATE AT 0.40ML AND INCREASED LOW RATE BY 10% TO 0.3ML., L...
     Route: 058
     Dates: start: 20241010
  11. FOSCARBIDOPA\FOSLEVODOPA [Suspect]
     Active Substance: FOSCARBIDOPA\FOSLEVODOPA
     Dosage: FIRST ADMIN DATE OCT 2024 AND LAST ADMIN DATE: 2024, INCREASED TO 0.40/HR TO BASE RATE, 0.44 ML/H...
     Route: 058
  12. FOSCARBIDOPA\FOSLEVODOPA [Suspect]
     Active Substance: FOSCARBIDOPA\FOSLEVODOPA
     Dosage: HIGH RATE CAN INCREASED TO 0.48ML ?BASE INCREASED TO 0.44ML ?LOW RATE INCREASED TO 0.33ML. ?EXTRA...
     Route: 058
     Dates: start: 20241027
  13. FOSCARBIDOPA\FOSLEVODOPA [Suspect]
     Active Substance: FOSCARBIDOPA\FOSLEVODOPA
     Dosage: HIGH RATE INCREASED FROM 0.48 TO 0.52ML ?BASE RATE 0.44ML TO 0.48ML ?LOW RATE 0.33ML TO 0.36ML?LA...
     Route: 058
     Dates: start: 20241029
  14. FOSCARBIDOPA\FOSLEVODOPA [Suspect]
     Active Substance: FOSCARBIDOPA\FOSLEVODOPA
     Dosage: BASE RATE IS 0.44ML ( DECREASED DUE TO DYSKINESIA) ?HIGH IS 0.48ML ?BOLUS REDUCED TO 0.15ML?LOW R...
     Route: 058
     Dates: start: 202411
  15. FOSCARBIDOPA\FOSLEVODOPA [Suspect]
     Active Substance: FOSCARBIDOPA\FOSLEVODOPA
     Dosage: BASE WAS 0.44ML INCREASED TO 0.48ML ?LOW WAS 0.39ML INCREASED TO 0.40ML ?HIGH WAS 0.48ML INCREASE...
     Route: 058
     Dates: start: 202412
  16. FOSCARBIDOPA\FOSLEVODOPA [Suspect]
     Active Substance: FOSCARBIDOPA\FOSLEVODOPA
     Dosage: BASE RATE REDUCED FROM 0.48MLS TO 0.45MLS ?HIGH RATE REDUCED FROM 0.50MLS TO 0.45MLS ?LOW RATE RE...
     Route: 058
     Dates: start: 20250114
  17. FOSCARBIDOPA\FOSLEVODOPA [Suspect]
     Active Substance: FOSCARBIDOPA\FOSLEVODOPA
     Dosage: LOW RATE TO BE DECREASED BY 0.01ML. REDUCED FROM 0.33ML TO 0.32ML
     Route: 058
     Dates: start: 20250417
  18. FOSCARBIDOPA\FOSLEVODOPA [Suspect]
     Active Substance: FOSCARBIDOPA\FOSLEVODOPA
     Dosage: HIGH RATE 0.40ML, BASE 0.37ML, LOW 0.27ML
     Route: 058
     Dates: start: 20241009, end: 20241010
  19. FOSCARBIDOPA\FOSLEVODOPA [Suspect]
     Active Substance: FOSCARBIDOPA\FOSLEVODOPA
     Dosage: LOW RATE WAS REDUCED FROM 0.32ML TO 0.30ML.
     Route: 058
     Dates: start: 20251013
  20. AZILECT [Concomitant]
     Active Substance: RASAGILINE MESYLATE
     Indication: Product used for unknown indication
  21. ZOPICLONE [Concomitant]
     Active Substance: ZOPICLONE
     Indication: Product used for unknown indication
     Dosage: NIGHT
  22. SINEMET [Concomitant]
     Active Substance: CARBIDOPA\LEVODOPA
     Indication: Parkinson^s disease
  23. SINEMET [Concomitant]
     Active Substance: CARBIDOPA\LEVODOPA
     Indication: Parkinson^s disease
  24. BENSERAZIDE HYDROCHLORIDE\LEVODOPA [Concomitant]
     Active Substance: BENSERAZIDE HYDROCHLORIDE\LEVODOPA
     Indication: Product used for unknown indication
     Dosage: PRN (AS REQUIRED)
  25. APOMORPHINE HYDROCHLORIDE [Concomitant]
     Active Substance: APOMORPHINE HYDROCHLORIDE
     Indication: Product used for unknown indication
     Dosage: PER DOSE
     Dates: end: 20241009

REACTIONS (28)
  - Suicidal ideation [Recovering/Resolving]
  - Freezing phenomenon [Recovered/Resolved]
  - Mental disorder [Recovered/Resolved]
  - Gait disturbance [Recovered/Resolved]
  - Speech disorder [Not Recovered/Not Resolved]
  - Tremor [Recovering/Resolving]
  - Mobility decreased [Unknown]
  - Affective disorder [Not Recovered/Not Resolved]
  - Impulse-control disorder [Unknown]
  - Depressed mood [Not Recovered/Not Resolved]
  - Migraine [Recovered/Resolved]
  - On and off phenomenon [Recovered/Resolved]
  - Dyskinesia [Recovered/Resolved]
  - Hypersexuality [Recovered/Resolved]
  - Influenza [Unknown]
  - Aggression [Recovering/Resolving]
  - Gait disturbance [Recovered/Resolved]
  - Freezing phenomenon [Recovered/Resolved]
  - On and off phenomenon [Not Recovered/Not Resolved]
  - Catheter site bruise [Not Recovered/Not Resolved]
  - Bradykinesia [Not Recovered/Not Resolved]
  - Restless legs syndrome [Not Recovered/Not Resolved]
  - Dyskinesia [Recovered/Resolved]
  - Agitation [Unknown]
  - Alopecia [Unknown]
  - Hypersexuality [Not Recovered/Not Resolved]
  - Dyskinesia [Recovering/Resolving]
  - Insomnia [Recovering/Resolving]

NARRATIVE: CASE EVENT DATE: 20240101
